FAERS Safety Report 10057881 (Version 1)
Quarter: 2014Q2

REPORT INFORMATION
  Report Type: Spontaneous
  Country: IT (occurrence: None)
  Receive Date: 20140402
  Receipt Date: 20140402
  Transmission Date: 20141212
  Serious: Yes (Other)
  Sender: FDA-Public Use
  Company Number: IT-DEXPHARM-20140133

PATIENT
  Age: 65 Year
  Sex: Male

DRUGS (1)
  1. AMLODIPIN [Suspect]
     Dates: end: 200712

REACTIONS (7)
  - Drug ineffective [None]
  - Acute coronary syndrome [None]
  - False negative investigation result [None]
  - Fall [None]
  - Hip fracture [None]
  - Gamma-glutamyltransferase increased [None]
  - Blood alcohol increased [None]
